FAERS Safety Report 4663960-X (Version None)
Quarter: 2005Q2

REPORT INFORMATION
  Report Type: 
  Country: None (occurrence: None)
  Receive Date: 20050428
  Receipt Date: 20050111
  Transmission Date: 20051028
  Serious: No
  Sender: FDA-Public Use
  Company Number: ACETADOTE_001

PATIENT
  Age: 16 Year
  Sex: Female
  Weight: 83.9154 kg

DRUGS (1)
  1. ACETADOTE [Suspect]
     Indication: OVERDOSE
     Dosage: 12613 MG, IV
     Route: 042
     Dates: start: 20050107, end: 20050107

REACTIONS (1)
  - ANAPHYLACTOID REACTION [None]
